FAERS Safety Report 26094434 (Version 1)
Quarter: 2025Q4

REPORT INFORMATION
  Report Type: Spontaneous
  Country: TW (occurrence: TW)
  Receive Date: 20251126
  Receipt Date: 20251126
  Transmission Date: 20260117
  Serious: Yes (Other)
  Sender: MERCK SHARP & DOHME LLC
  Company Number: TW-009507513-1902TWN005428

PATIENT
  Age: 66 Year
  Sex: Male
  Weight: 65 kg

DRUGS (7)
  1. SUGAMMADEX SODIUM [Suspect]
     Active Substance: SUGAMMADEX SODIUM
     Dosage: DOSE DESCRIPTION : 100 MILLIGRAM
     Route: 042
  2. ROCURONIUM BROMIDE [Suspect]
     Active Substance: ROCURONIUM BROMIDE
     Indication: General anaesthesia
     Dosage: DOSE DESCRIPTION : 50 MILLIGRAM
  3. PROPOFOL [Suspect]
     Active Substance: PROPOFOL
     Indication: General anaesthesia
     Dosage: DOSE DESCRIPTION : UNK
  4. REMIFENTANIL HYDROCHLORIDE [Suspect]
     Active Substance: REMIFENTANIL HYDROCHLORIDE
     Dosage: DOSE DESCRIPTION : UNK
  5. LIDOCAINE [Suspect]
     Active Substance: LIDOCAINE
     Indication: General anaesthesia
     Dosage: DOSE DESCRIPTION : 40 MILLIGRAM?CONCENTRATION: 2 PERCENT
  6. NEOSTIGMINE METHYLSULFATE [Concomitant]
     Active Substance: NEOSTIGMINE METHYLSULFATE
     Dosage: DOSE DESCRIPTION : 3 MILLIGRAM
  7. GLYCOPYRROLATE [Concomitant]
     Active Substance: GLYCOPYRROLATE
     Dosage: DOSE DESCRIPTION : 1 MILLIGRAM

REACTIONS (1)
  - Laryngospasm [Recovered/Resolved]
